FAERS Safety Report 7829838-5 (Version None)
Quarter: 2011Q4

REPORT INFORMATION
  Report Type: 
  Country: None (occurrence: None)
  Receive Date: 20111021
  Receipt Date: 20111010
  Transmission Date: 20120403
  Serious: Yes (Death, Hospitalization)
  Sender: FDA-Public Use
  Company Number: US-RANBAXY-2011US-49067

PATIENT
  Age: 36 Year
  Sex: Male

DRUGS (1)
  1. ACETAMINOPHEN [Suspect]
     Indication: PRODUCT USED FOR UNKNOWN INDICATION
     Dosage: UNK, UNK
     Route: 048

REACTIONS (5)
  - BRADYCARDIA [None]
  - HYPOTENSION [None]
  - HEPATIC FAILURE [None]
  - ILEUS [None]
  - COMPLETED SUICIDE [None]
